FAERS Safety Report 7931242-6 (Version None)
Quarter: 2011Q4

REPORT INFORMATION
  Report Type: 
  Country: None (occurrence: None)
  Receive Date: 20111121
  Receipt Date: 20111114
  Transmission Date: 20120403
  Serious: Yes (Other)
  Sender: FDA-Public Use
  Company Number: US-TEVA-309188USA

PATIENT
  Age: 40 Year
  Sex: Male

DRUGS (2)
  1. ANTABUSE [Suspect]
     Indication: ALCOHOLISM
  2. ETHANOL [Interacting]

REACTIONS (2)
  - ALCOHOL INTERACTION [None]
  - KETOACIDOSIS [None]
